FAERS Safety Report 21841564 (Version 1)
Quarter: 2023Q1

REPORT INFORMATION
  Report Type: Spontaneous
  Country: CA (occurrence: CA)
  Receive Date: 20230110
  Receipt Date: 20230110
  Transmission Date: 20230418
  Serious: Yes (Other)
  Sender: FDA-Public Use
  Company Number: CA-SAMSUNG BIOEPIS-SB-2023-00243

PATIENT
  Age: 59 Year
  Sex: Female
  Weight: 61 kg

DRUGS (38)
  1. TRASTUZUMAB [Suspect]
     Active Substance: TRASTUZUMAB
     Indication: Breast cancer metastatic
     Route: 042
  2. TRASTUZUMAB [Suspect]
     Active Substance: TRASTUZUMAB
     Route: 042
  3. TRASTUZUMAB [Suspect]
     Active Substance: TRASTUZUMAB
     Route: 042
  4. TRASTUZUMAB [Suspect]
     Active Substance: TRASTUZUMAB
     Route: 042
  5. TRASTUZUMAB [Suspect]
     Active Substance: TRASTUZUMAB
     Route: 042
  6. TRASTUZUMAB [Suspect]
     Active Substance: TRASTUZUMAB
     Route: 042
  7. TRASTUZUMAB [Suspect]
     Active Substance: TRASTUZUMAB
     Route: 042
  8. PERJETA [Suspect]
     Active Substance: PERTUZUMAB
     Indication: Breast cancer metastatic
     Dosage: VIAL, CONCENTRATE SOL
     Route: 042
  9. PERJETA [Suspect]
     Active Substance: PERTUZUMAB
     Dosage: VIAL, CONCENTRATE SOL
     Route: 042
  10. PERJETA [Suspect]
     Active Substance: PERTUZUMAB
     Dosage: VIAL, CONCENTRATE SOL
     Route: 042
  11. PERJETA [Suspect]
     Active Substance: PERTUZUMAB
     Dosage: VIAL, CONCENTRATE SOL, SOLUTION INTRAVENOUS
     Route: 042
  12. PERJETA [Suspect]
     Active Substance: PERTUZUMAB
     Dosage: VIAL, CONCENTRATE SOL
     Route: 042
  13. PERJETA [Suspect]
     Active Substance: PERTUZUMAB
     Dosage: VIAL, CONCENTRATE SOL
     Route: 042
  14. ACETAMINOPHEN [Concomitant]
     Active Substance: ACETAMINOPHEN
     Indication: Premedication
     Route: 048
  15. ACETAMINOPHEN [Concomitant]
     Active Substance: ACETAMINOPHEN
     Route: 048
  16. ACETAMINOPHEN [Concomitant]
     Active Substance: ACETAMINOPHEN
     Route: 048
  17. ASPIRIN [Concomitant]
     Active Substance: ASPIRIN
     Indication: Product used for unknown indication
     Dosage: UNKNOWN
     Route: 065
  18. ASTAXANTHIN [Concomitant]
     Active Substance: ASTAXANTHIN
     Indication: Product used for unknown indication
     Dosage: UNKNOWN
     Route: 065
  19. BENADRYL [Concomitant]
     Active Substance: DIPHENHYDRAMINE HYDROCHLORIDE
     Indication: Premedication
     Route: 048
  20. BENADRYL [Concomitant]
     Active Substance: DIPHENHYDRAMINE HYDROCHLORIDE
     Route: 042
  21. BERBERINE [Concomitant]
     Active Substance: BERBERINE
     Indication: Product used for unknown indication
     Dosage: UNKNOWN
     Route: 065
  22. DIPHENHYDRAMINE [Concomitant]
     Active Substance: DIPHENHYDRAMINE
     Indication: Premedication
     Route: 042
  23. DIPHENHYDRAMINE [Concomitant]
     Active Substance: DIPHENHYDRAMINE
     Route: 042
  24. DIPHENHYDRAMINE [Concomitant]
     Active Substance: DIPHENHYDRAMINE
     Dosage: THERAPY DURATION: MINUS 221 UNIT UNSPECIFIED
     Route: 042
  25. DIPHENHYDRAMINE [Concomitant]
     Active Substance: DIPHENHYDRAMINE
     Route: 042
  26. HYDROCORTISONE [Concomitant]
     Active Substance: HYDROCORTISONE
     Indication: Premedication
     Route: 042
  27. HYDROCORTISONE [Concomitant]
     Active Substance: HYDROCORTISONE
     Dosage: THERAPY DURATION: MINUS 221 UNIT UNSPECIFIED
     Route: 042
  28. MELATONIN [Concomitant]
     Active Substance: MELATONIN
     Indication: Product used for unknown indication
     Dosage: UNKNOWN
     Route: 065
  29. NALTREXONE [Concomitant]
     Active Substance: NALTREXONE
     Indication: Product used for unknown indication
     Dosage: UNKNOWN
     Route: 065
  30. NIACIN [Concomitant]
     Active Substance: NIACIN
     Indication: Product used for unknown indication
     Dosage: UNKNOWN
     Route: 065
  31. DIETARY SUPPLEMENT\RESVERATROL [Concomitant]
     Active Substance: DIETARY SUPPLEMENT\RESVERATROL
     Indication: Product used for unknown indication
     Dosage: UNKNOWN
     Route: 065
  32. SELENIUM [Concomitant]
     Active Substance: SELENIUM
     Indication: Product used for unknown indication
     Dosage: UNKNOWN
     Route: 065
  33. DIETARY SUPPLEMENT\HERBALS\MILK THISTLE [Concomitant]
     Active Substance: DIETARY SUPPLEMENT\HERBALS\MILK THISTLE
     Indication: Product used for unknown indication
     Dosage: UNKNOWN
     Route: 065
  34. TUKYSA [Concomitant]
     Active Substance: TUCATINIB
     Indication: Product used for unknown indication
     Dosage: UNKNOWN
     Route: 065
  35. TYLENOL [Concomitant]
     Active Substance: ACETAMINOPHEN
     Indication: Product used for unknown indication
     Route: 048
  36. VISCUM ALBUM FRUITING TOP [Concomitant]
     Active Substance: VISCUM ALBUM FRUITING TOP
     Indication: Product used for unknown indication
     Dosage: UNKNOWN
     Route: 065
  37. VITAMIN B COMPLEX [Concomitant]
     Active Substance: CYANOCOBALAMIN\DEXPANTHENOL\NIACINAMIDE\PYRIDOXINE HYDROCHLORIDE\RIBOFLAVIN 5^-PHOSPHATE SODIUM\THIA
     Indication: Product used for unknown indication
     Dosage: UNKNOWN
     Route: 065
  38. VITAMIN C [Concomitant]
     Active Substance: ASCORBIC ACID
     Indication: Product used for unknown indication
     Dosage: UNKNOWN
     Route: 065

REACTIONS (10)
  - Blood pressure decreased [Unknown]
  - Blood pressure diastolic decreased [Unknown]
  - Blood pressure systolic decreased [Unknown]
  - Eastern Cooperative Oncology Group performance status worsened [Unknown]
  - Food poisoning [Unknown]
  - Heart rate decreased [Unknown]
  - Metastatic neoplasm [Unknown]
  - Neuropathy peripheral [Unknown]
  - Weight decreased [Unknown]
  - Weight increased [Unknown]
